FAERS Safety Report 7853016-7 (Version None)
Quarter: 2011Q4

REPORT INFORMATION
  Report Type: 
  Country: None (occurrence: None)
  Receive Date: 20111026
  Receipt Date: 20111025
  Transmission Date: 20120403
  Serious: Yes (Hospitalization)
  Sender: FDA-Public Use
  Company Number: US-TEVA-301622USA

PATIENT
  Sex: Female

DRUGS (77)
  1. ATROPINE [Concomitant]
     Indication: DIARRHOEA
  2. ONDANSETRON [Concomitant]
     Indication: VOMITING
     Dosage: 4MG/5ML EVERY OTHER WEEK
     Dates: start: 20100308, end: 20100630
  3. BACITRACIN [Concomitant]
     Indication: MOUTH ULCERATION
     Dosage: 1APPLICATION AS NECESSARY
     Dates: start: 20100607, end: 20100621
  4. NORMAL SALINE WITH 20 MEQ KCL [Concomitant]
     Indication: SMALL INTESTINAL OBSTRUCTION
     Dosage: CONTINUOUS
     Dates: start: 20100405, end: 20100407
  5. LEUCOVORIN CALCIUM [Suspect]
     Dosage: 400MG/M2
     Route: 042
     Dates: start: 20100322, end: 20100322
  6. PROCHLORPERAZINE EDISYLATE [Concomitant]
     Indication: NAUSEA
     Dosage: .7143 MILLIGRAM;
     Dates: start: 20100308
  7. METRONIDAZOLE [Concomitant]
     Dosage: 150 MILLIGRAM; 150MG
     Dates: start: 20100405, end: 20100407
  8. OCTREOTIDE ACETATE [Concomitant]
     Indication: DIARRHOEA
     Dosage: 1.0714 MILLIGRAM;
     Dates: start: 20100412
  9. OCTREOTIDE ACETATE [Concomitant]
     Dosage: 300 MICROGRAM; 300MIGROGRAM
     Dates: start: 20100406, end: 20100408
  10. ONDANSETRON [Concomitant]
     Indication: NAUSEA
     Dosage: 16 MILLIGRAM; 16MG
     Dates: start: 20100403, end: 20100630
  11. LORAZEPAM [Concomitant]
     Indication: ANXIETY
     Dosage: 2 MILLIGRAM; AS NEEDED
     Dates: start: 20100503, end: 20100601
  12. PEGFILGRASTIM [Concomitant]
     Indication: NEUTROPENIA
     Dosage: 6MG/0.6ML
     Dates: start: 20100505
  13. DIMETICONE, ACTIVATED [Concomitant]
     Indication: ABDOMINAL DISTENSION
     Dosage: AS NECESARY
     Route: 048
     Dates: start: 20100421, end: 20100712
  14. MAGIC MOUTH WASH WITH NYSTATIN [Concomitant]
     Indication: OROPHARYNGEAL PAIN
     Dosage: 1 TBSP QID
  15. DIPHENHYDRAMINE HCL [Concomitant]
     Indication: TRANSFUSION
  16. FLUOROURACIL [Suspect]
     Dosage: 2400MG/M2
     Route: 040
     Dates: start: 20100308, end: 20100310
  17. FLUOROURACIL [Suspect]
     Dosage: 160 MG/M2
     Route: 042
     Dates: start: 20100503, end: 20100505
  18. METRONIDAZOLE [Concomitant]
     Indication: ANTIFUNGAL PROPHYLAXIS
     Dosage: 1500 MILLIGRAM; 1500MG
     Dates: start: 20100409, end: 20100413
  19. POTASSIUM CHLORIDE [Concomitant]
     Indication: HYPOKALAEMIA
     Dosage: 20MEQ/100ML ONCE
     Dates: start: 20100412, end: 20100412
  20. FLUOROURACIL [Suspect]
     Route: 040
     Dates: start: 20100322, end: 20100322
  21. FLUOROURACIL [Suspect]
     Dosage: 1920 MG/M2
     Route: 042
     Dates: start: 20100413, end: 20100415
  22. LEUCOVORIN CALCIUM [Suspect]
     Dosage: 100MG/M2
     Route: 042
     Dates: start: 20100517, end: 20100517
  23. IRINOTECAN HCL [Suspect]
     Indication: NEOPLASM
     Dosage: 150MG/M2
     Route: 042
     Dates: start: 20100308, end: 20100308
  24. IRINOTECAN HCL [Suspect]
     Dosage: 150MG/M2
     Route: 042
     Dates: start: 20100322, end: 20100322
  25. IRINOTECAN HCL [Suspect]
     Dosage: 120MG/M2
     Route: 042
     Dates: start: 20100413, end: 20100413
  26. DEXAMETHASONE [Concomitant]
     Indication: NAUSEA
     Dosage: .7143 MILLIGRAM;
     Dates: start: 20100308
  27. MAGIC MOUTH WASH [Concomitant]
     Indication: DIARRHOEA
     Dosage: 20 ML; 20ML
  28. FLUOXETINE [Concomitant]
     Indication: DEPRESSION
     Dosage: 20 MILLIGRAM;
     Dates: start: 19850101
  29. LORAZEPAM [Concomitant]
     Indication: INSOMNIA
  30. SODIUM CHLORIDE INJ [Concomitant]
     Indication: DEHYDRATION
     Route: 042
     Dates: start: 20100607, end: 20100607
  31. RANITIDINE HYDROCHLORIDE [Concomitant]
     Indication: GASTROOESOPHAGEAL REFLUX DISEASE
     Dosage: 150 MILLIGRAM;
     Dates: start: 20100519, end: 20100726
  32. LEUCOVORIN CALCIUM [Suspect]
     Indication: NEOPLASM
     Dosage: 400MG/M2
     Route: 042
     Dates: start: 20100308, end: 20100308
  33. ABT-888 VELIPARIB [Suspect]
     Dosage: 20 MILLIGRAM; 20MG
     Route: 048
     Dates: start: 20100503, end: 20100507
  34. IRINOTECAN HCL [Suspect]
     Dosage: 100MG/M2
     Route: 042
     Dates: start: 20100517, end: 20100517
  35. LOPERAMIDE HCL [Concomitant]
     Dosage: PRN
     Dates: start: 19900101, end: 20100311
  36. POTASSIUM [Concomitant]
     Indication: HYPOKALAEMIA
     Dates: start: 20100322, end: 20100322
  37. PANTOPRAZOLE SODIUM [Concomitant]
     Indication: GASTROOESOPHAGEAL REFLUX DISEASE
     Dosage: 40 MILLIGRAM;
     Dates: start: 20091201, end: 20100328
  38. SODIUM CHLORIDE INJ [Concomitant]
     Indication: PROPHYLAXIS AGAINST DEHYDRATION
     Route: 042
     Dates: start: 20100405, end: 20100405
  39. SODIUM CHLORIDE INJ [Concomitant]
     Indication: HYPONATRAEMIA
     Route: 042
     Dates: start: 20100513, end: 20100513
  40. MAGNESIUM SULFATE [Concomitant]
     Dates: start: 20100607, end: 20100607
  41. FAMOTIDINE [Concomitant]
     Indication: GASTROOESOPHAGEAL REFLUX DISEASE
     Dosage: 10 MILLIGRAM;
     Dates: start: 20100422, end: 20100430
  42. SODIUM PHOSPHATE DIBASIC [Concomitant]
     Indication: HYPOPHOSPHATAEMIA
     Dosage: 7.2 MMOLE
     Dates: start: 20100405, end: 20100405
  43. LEUCOVORIN CALCIUM [Suspect]
     Dosage: 400MG/M2
     Route: 042
     Dates: start: 20100413, end: 20100413
  44. LEUCOVORIN CALCIUM [Suspect]
     Dosage: 400MG/M2
     Route: 042
     Dates: start: 20100503, end: 20100503
  45. ABT-888 VELIPARIB [Suspect]
     Dosage: 20 MILLIGRAM; 20MG
     Route: 048
     Dates: end: 20100618
  46. PROCHLORPERAZINE EDISYLATE [Concomitant]
     Indication: VOMITING
  47. MULTI-VITAMIN [Concomitant]
     Indication: ROUTINE HEALTH MAINTENANCE
     Dates: start: 20091201
  48. POTASSIUM CHLORIDE [Concomitant]
     Dosage: 20MEQ AS NEEDED
     Dates: start: 20100517, end: 20100816
  49. MAGNESIUM [Concomitant]
     Dates: start: 20100513, end: 20100513
  50. MAGNESIUM [Concomitant]
     Dosage: EVERY 1-2 WEEKS AS NEEDED
     Dates: start: 20100614
  51. POTASSIUM [Concomitant]
     Dates: start: 20100412, end: 20100412
  52. PAPAVER SOMNIFERUM TINCTURE [Concomitant]
     Indication: DIARRHOEA
     Dosage: AS NECESSARY
     Dates: start: 20100513, end: 20100513
  53. ALUDROX [Concomitant]
     Indication: HYPOMAGNESAEMIA
  54. FLUOROURACIL [Suspect]
     Indication: NEOPLASM
     Route: 040
     Dates: start: 20100308, end: 20100308
  55. ABT-888 VELIPARIB [Suspect]
     Indication: NEOPLASM
     Dosage: 20 MILLIGRAM; 20
     Route: 048
     Dates: start: 20100413, end: 20100417
  56. IRINOTECAN HCL [Suspect]
     Dosage: 100MG/M2
     Route: 042
     Dates: start: 20100503, end: 20100503
  57. DEXAMETHASONE [Concomitant]
     Indication: VOMITING
  58. LIDOCAINE [Concomitant]
     Indication: LOCAL ANAESTHESIA
     Dates: start: 20100406, end: 20100406
  59. MAGNESIUM [Concomitant]
     Indication: HYPOMAGNESAEMIA
     Dates: start: 20100413, end: 20100413
  60. POTASSIUM [Concomitant]
     Dates: start: 20100601, end: 20100601
  61. FAMOTIDINE [Concomitant]
     Indication: GASTROINTESTINAL DISORDER
     Dosage: 40 MILLIGRAM; 40 MILLIGRAM
     Dates: start: 20100405, end: 20100407
  62. ENOXAPARIN SODIUM [Concomitant]
     Indication: THROMBOSIS PROPHYLAXIS
     Dosage: 24 MILLIGRAM;
     Dates: start: 20100405, end: 20100408
  63. METOCLOPRAMIDE HYDROCHLORIDE [Concomitant]
     Indication: ABDOMINAL DISTENSION
     Dosage: 10 MILLIGRAM;
     Dates: start: 20100426, end: 20100510
  64. FLUOROURACIL [Suspect]
     Dosage: 1460MG/M2
     Route: 042
  65. LOPERAMIDE HCL [Concomitant]
     Indication: DIARRHOEA
     Dosage: 1-2TABS Q2H PRN
     Dates: start: 20100311, end: 20110101
  66. POTASSIUM CHLORIDE [Concomitant]
     Dosage: 20 MILLIEQUIVALENTS;
     Dates: start: 20100426, end: 20100517
  67. CALCIUM CARBONATE [Concomitant]
     Indication: GASTROOESOPHAGEAL REFLUX DISEASE
     Dosage: AS REQUIRED
     Dates: start: 20091201, end: 20100701
  68. ACETAMINOPHEN [Concomitant]
     Indication: ARTHRITIS
     Dosage: 1000 MILLIGRAM;
  69. ACETAMINOPHEN [Concomitant]
     Indication: ABDOMINAL PAIN
  70. CETIRIZINE HCL [Concomitant]
     Indication: SEASONAL ALLERGY
     Dosage: 10 MILLIGRAM;
     Dates: start: 20100318, end: 20100726
  71. MAGNESIUM [Concomitant]
     Dates: start: 20100519, end: 20100519
  72. MAGNESIUM [Concomitant]
     Dates: start: 20100602, end: 20100602
  73. MAGNESIUM [Concomitant]
     Dates: start: 20100604, end: 20100604
  74. POTASSIUM [Concomitant]
     Dosage: 40 MILLIEQUIVALENTS;
     Dates: start: 20100406, end: 20100406
  75. MUPIROCIN [Concomitant]
     Indication: SKIN FISSURES
     Dosage: 1 APPLICATION AS REQUIRED.
     Dates: start: 20100621, end: 20100621
  76. SODIUM CHLORIDE- MOUTH RINSE [Concomitant]
     Indication: STOMATITIS
     Dosage: AS NEEDED
     Dates: start: 20100621
  77. ACETAMINOPHEN [Concomitant]
     Indication: TRANSFUSION
     Dates: start: 20100408, end: 20100408

REACTIONS (1)
  - ENTEROCOLITIS [None]
